FAERS Safety Report 5905449-3 (Version None)
Quarter: 2008Q4

REPORT INFORMATION
  Report Type: 
  Country: None (occurrence: None)
  Receive Date: 20081001
  Receipt Date: 20081001
  Transmission Date: 20090506
  Serious: No
  Sender: FDA-Public Use
  Company Number: None

PATIENT
  Age: 63 Year
  Sex: Female
  Weight: 100.2449 kg

DRUGS (1)
  1. AZITHROMYCIN [Suspect]
     Indication: RESPIRATORY TRACT INFECTION
     Dosage: 250 MG PACKET OF 6 PILLS ORAL
     Route: 048
     Dates: start: 20080826, end: 20080827

REACTIONS (6)
  - AGEUSIA [None]
  - DIARRHOEA [None]
  - DIZZINESS [None]
  - GINGIVITIS [None]
  - LIP DRY [None]
  - TONGUE ULCERATION [None]
